FAERS Safety Report 10368973 (Version 1)
Quarter: 2014Q1

REPORT INFORMATION
  Report Type: Spontaneous
  Country: US (occurrence: None)
  Receive Date: 20140306
  Receipt Date: 20140306
  Transmission Date: 20141002
  Serious: Yes (Hospitalization)
  Sender: FDA-Public Use
  Company Number: 163-21880-13022995

PATIENT
  Age: 72 Year
  Sex: Female

DRUGS (3)
  1. REVLIMID [Suspect]
     Indication: PLASMA CELL MYELOMA
     Route: 048
     Dates: start: 201204
  2. DECADRON (DEXAMETHASONE) (UNKNOWN) [Concomitant]
  3. VALTREX (VALACICLOVIR HYDROCHLORIDE) (UNKNOWN) [Concomitant]

REACTIONS (4)
  - Vomiting [None]
  - Nausea [None]
  - Pneumonia [None]
  - Chest pain [None]
